FAERS Safety Report 25086888 (Version 1)
Quarter: 2025Q1

REPORT INFORMATION
  Report Type: Report from Study
  Country: IN (occurrence: IN)
  Receive Date: 20250318
  Receipt Date: 20250318
  Transmission Date: 20250409
  Serious: Yes (Other)
  Sender: RANBAXY
  Company Number: IN-SUN PHARMACEUTICAL INDUSTRIES LTD-2025R1-498841

PATIENT
  Sex: Female

DRUGS (3)
  1. LIDOCAINE [Suspect]
     Active Substance: LIDOCAINE
     Indication: Analgesic therapy
  2. EPINEPHRINE [Suspect]
     Active Substance: EPINEPHRINE
     Indication: Analgesic therapy
  3. BUPIVACAINE [Suspect]
     Active Substance: BUPIVACAINE
     Indication: Analgesic therapy

REACTIONS (2)
  - Bradycardia foetal [Unknown]
  - Exposure during pregnancy [Unknown]
